FAERS Safety Report 10130144 (Version 1)
Quarter: 2014Q2

REPORT INFORMATION
  Report Type: Spontaneous
  Country: US (occurrence: None)
  Receive Date: 20140425
  Receipt Date: 20140425
  Transmission Date: 20141212
  Serious: Yes (Hospitalization)
  Sender: FDA-Public Use
  Company Number: None

PATIENT
  Age: 65 Year
  Sex: Male
  Weight: 117 kg

DRUGS (3)
  1. CISPLATIN [Suspect]
     Indication: RADIOTHERAPY
     Dates: end: 20140317
  2. DURAGESIC PATCHES [Concomitant]
  3. OXYCODONE [Suspect]

REACTIONS (8)
  - Dizziness [None]
  - Fatigue [None]
  - Fluid intake reduced [None]
  - Oropharyngeal pain [None]
  - Breakthrough pain [None]
  - Weight decreased [None]
  - Dehydration [None]
  - Hypotension [None]
